FAERS Safety Report 8155570 (Version 2)
Quarter: 2014Q4

REPORT INFORMATION
  Report Type: Spontaneous
  Country: US (occurrence: US)
  Receive Date: 20110926
  Receipt Date: 20141226
  Transmission Date: 20150529
  Serious: Yes (Hospitalization, Other)
  Sender: FDA-Public Use
  Company Number: US-JNJFOC-20110906509

PATIENT
  Age: 42 Year
  Sex: Male
  Weight: 121.56 kg

DRUGS (4)
  1. VELCADE [Suspect]
     Active Substance: BORTEZOMIB
     Indication: PLASMA CELL MYELOMA
     Dosage: DAYS 1, 8, 15, 22 ON 35 DAY CYCLE
     Route: 042
     Dates: start: 20110118, end: 20110720
  2. DECADRON [Suspect]
     Active Substance: DEXAMETHASONE
     Indication: PLASMA CELL MYELOMA
     Dosage: IV ON DAY OF AND PO ON DAY AFTER VELCADE
     Route: 042
     Dates: start: 20110118, end: 20110720
  3. DOXIL [Suspect]
     Active Substance: DOXORUBICIN HYDROCHLORIDE
     Indication: PLASMA CELL MYELOMA
     Route: 042
     Dates: start: 20110121, end: 20110629
  4. DECADRON [Suspect]
     Active Substance: DEXAMETHASONE
     Indication: PLASMA CELL MYELOMA
     Dosage: IV ON DAY OF AND PO ON DAY AFTER VELCADE
     Route: 048
     Dates: start: 20110118, end: 20110720

REACTIONS (3)
  - Pyrexia [Recovered/Resolved]
  - Constipation [Recovering/Resolving]
  - Abdominal pain [Recovered/Resolved]

NARRATIVE: CASE EVENT DATE: 20110307
